FAERS Safety Report 15482053 (Version 1)
Quarter: 2018Q4

REPORT INFORMATION
  Report Type: Spontaneous
  Country: US (occurrence: US)
  Receive Date: 20181003
  Receipt Date: 20181003
  Transmission Date: 20190205
  Serious: Yes (Congenital Anomaly)
  Sender: FDA-Public Use
  Company Number: None

PATIENT
  Sex: Male

DRUGS (8)
  1. TAGAMET 200MG [Concomitant]
  2. VITAMIN B1 100MG [Concomitant]
  3. VITAMIN D3 2000UNITS [Concomitant]
  4. WARFARIN 4MG [Concomitant]
     Active Substance: WARFARIN
  5. VITAMIN C 1000MG [Concomitant]
  6. ZENPEP [Concomitant]
     Active Substance: PANCRELIPASE AMYLASE\PANCRELIPASE LIPASE\PANCRELIPASE PROTEASE
  7. ATENOLOL 100MG [Concomitant]
     Active Substance: ATENOLOL
  8. KALYDECO [Suspect]
     Active Substance: IVACAFTOR
     Indication: INFECTIVE PULMONARY EXACERBATION OF CYSTIC FIBROSIS
     Route: 048
     Dates: start: 20171228

REACTIONS (2)
  - Constipation [None]
  - Therapy change [None]
